FAERS Safety Report 20674446 (Version 1)
Quarter: 2022Q2

REPORT INFORMATION
  Report Type: Spontaneous
  Country: US (occurrence: None)
  Receive Date: 20220404
  Receipt Date: 20220404
  Transmission Date: 20220720
  Serious: Yes (Other)
  Sender: FDA-Public Use
  Company Number: None

PATIENT
  Age: 74 Year
  Sex: Female
  Weight: 54 kg

DRUGS (1)
  1. CUVITRU [Suspect]
     Active Substance: HUMAN IMMUNOGLOBULIN G
     Indication: Immunodeficiency common variable
     Dosage: OTHER FREQUENCY : SQ WEEKLY;?
     Route: 058

REACTIONS (3)
  - Burning sensation [None]
  - Pain [None]
  - Infusion related reaction [None]

NARRATIVE: CASE EVENT DATE: 20220327
